FAERS Safety Report 24964943 (Version 1)
Quarter: 2025Q1

REPORT INFORMATION
  Report Type: Spontaneous
  Country: US (occurrence: US)
  Receive Date: 20250213
  Receipt Date: 20250213
  Transmission Date: 20250409
  Serious: Yes (Other)
  Sender: ALVOGEN
  Company Number: US-ALVOGEN-2025096242

PATIENT
  Sex: Female
  Weight: 50.6 kg

DRUGS (5)
  1. SERTRALINE [Suspect]
     Active Substance: SERTRALINE HYDROCHLORIDE
     Indication: Product used for unknown indication
  2. APTIOM [Suspect]
     Active Substance: ESLICARBAZEPINE ACETATE
     Indication: Epilepsy
  3. FLUOXETINE [Suspect]
     Active Substance: FLUOXETINE HYDROCHLORIDE
     Indication: Product used for unknown indication
  4. HYDROXYZINE [Suspect]
     Active Substance: HYDROXYZINE HYDROCHLORIDE
     Indication: Insomnia
  5. KLONOPIN [Suspect]
     Active Substance: CLONAZEPAM
     Indication: Product used for unknown indication

REACTIONS (21)
  - Polyarthritis [Unknown]
  - Syncope [Unknown]
  - Vitamin D decreased [Unknown]
  - Mood swings [Unknown]
  - Gastrointestinal disorder [Unknown]
  - Blood insulin increased [Unknown]
  - Gastrooesophageal reflux disease [Unknown]
  - Musculoskeletal pain [Unknown]
  - Anxiety disorder [Recovering/Resolving]
  - Depression [Unknown]
  - Hyperaesthesia [Unknown]
  - Sleep disorder [Unknown]
  - Food aversion [Unknown]
  - Acanthosis nigricans [Unknown]
  - Weight increased [Unknown]
  - Abdominal pain [Unknown]
  - Hypersomnia [Unknown]
  - Gastritis [Unknown]
  - Electric shock sensation [Recovering/Resolving]
  - Headache [Recovering/Resolving]
  - Dizziness [Recovering/Resolving]
